FAERS Safety Report 18575335 (Version 1)
Quarter: 2020Q4

REPORT INFORMATION
  Report Type: Report from Study
  Country: GB (occurrence: GB)
  Receive Date: 20201203
  Receipt Date: 20201203
  Transmission Date: 20210114
  Serious: Yes (Other)
  Sender: FDA-Public Use
  Company Number: GB-TAKEDA-2020TUS021688

PATIENT
  Sex: Male

DRUGS (1)
  1. VEDOLIZUMAB [Suspect]
     Active Substance: VEDOLIZUMAB
     Indication: COLITIS ULCERATIVE
     Dosage: 300 MILLIGRAM
     Route: 042
     Dates: start: 201908

REACTIONS (5)
  - Lower respiratory tract infection [Unknown]
  - COVID-19 [Unknown]
  - Lethargy [Unknown]
  - Fatigue [Recovered/Resolved]
  - Cough [Recovered/Resolved]
